FAERS Safety Report 23523783 (Version 1)
Quarter: 2024Q1

REPORT INFORMATION
  Report Type: Spontaneous
  Country: IT (occurrence: IT)
  Receive Date: 20240214
  Receipt Date: 20240214
  Transmission Date: 20240410
  Serious: Yes (Other)
  Sender: FDA-Public Use
  Company Number: None

PATIENT
  Age: 83 Year
  Sex: Male

DRUGS (4)
  1. ACYCLOVIR [Suspect]
     Active Substance: ACYCLOVIR
     Indication: Herpes ophthalmic
     Dosage: 400 MG/5 TIMES A DAY.
     Dates: start: 20231123, end: 20231127
  2. PREDNISONE [Concomitant]
     Active Substance: PREDNISONE
     Indication: Product used for unknown indication
     Dosage: DETACORTENE 5MG, 1/DAY.
     Route: 048
  3. RAMIPRIL [Concomitant]
     Active Substance: RAMIPRIL
     Indication: Product used for unknown indication
     Dosage: RAMIPRIL 5MG, 1/DAY.
     Route: 048
  4. HYALURONIC ACID [Concomitant]
     Active Substance: HYALURONIC ACID
     Indication: Product used for unknown indication
     Route: 050

REACTIONS (3)
  - Blood urea increased [Recovering/Resolving]
  - Hypercreatinaemia [Recovering/Resolving]
  - Acute kidney injury [Recovering/Resolving]
